FAERS Safety Report 23903684 (Version 2)
Quarter: 2024Q2

REPORT INFORMATION
  Report Type: Report from Study
  Country: TW (occurrence: TW)
  Receive Date: 20240527
  Receipt Date: 20240611
  Transmission Date: 20240716
  Serious: Yes (Hospitalization)
  Sender: FDA-Public Use
  Company Number: TW-BAYER-2024A076668

PATIENT
  Age: 82 Year
  Sex: Male

DRUGS (1)
  1. EYLEA [Suspect]
     Active Substance: AFLIBERCEPT
     Indication: Neovascular age-related macular degeneration
     Dosage: 0.05 ML, ONCE, 40 MG/ML
     Dates: start: 20240425

REACTIONS (1)
  - Retinal operation [Recovered/Resolved]

NARRATIVE: CASE EVENT DATE: 20240425
